FAERS Safety Report 23329277 (Version 1)
Quarter: 2023Q4

REPORT INFORMATION
  Report Type: Other
  Country: US (occurrence: None)
  Receive Date: 20231222
  Receipt Date: 20231222
  Transmission Date: 20240110
  Serious: Yes (Congenital Anomaly)
  Sender: FDA-Public Use
  Company Number: DE-ROCHE-3307476

PATIENT
  Age: 0 Year
  Sex: Female
  Weight: 9.16 kg

DRUGS (7)
  1. OCRELIZUMAB [Suspect]
     Active Substance: OCRELIZUMAB
     Indication: Product used for unknown indication
     Route: 064
     Dates: start: 20210409, end: 20210423
  2. HEPATITIS B VIRUS VACCINE [Concomitant]
     Active Substance: HEPATITIS B VIRUS VACCINE
     Dates: start: 20220715
  3. POLIOMYELITIS VACCINE [Concomitant]
     Active Substance: POLIOMYELITIS VACCINE
     Dates: start: 20220715
  4. PCV13 VACCINE [Concomitant]
  5. HAEMOPHILUS INFLUENZAE TYPE B [Concomitant]
     Active Substance: HAEMOPHILUS INFLUENZAE TYPE B
  6. MEASLES-MUMPS-RUBELLA VIRUS VACCINE [Concomitant]
     Active Substance: MEASLES-MUMPS-RUBELLA VIRUS VACCINE
  7. HEPATITIS A VIRUS STRAIN HM175 ANTIGEN (FORMALDEHYDE INACTIVATED) [Concomitant]
     Active Substance: HEPATITIS A VIRUS STRAIN HM175 ANTIGEN (FORMALDEHYDE INACTIVATED)

REACTIONS (4)
  - Ventricular septal defect [Recovered/Resolved]
  - Atrial septal defect [Recovered/Resolved]
  - Patent ductus arteriosus [Recovered/Resolved]
  - Foetal exposure during pregnancy [Unknown]

NARRATIVE: CASE EVENT DATE: 20220116
